FAERS Safety Report 13046726 (Version 5)
Quarter: 2017Q2

REPORT INFORMATION
  Report Type: Report from Study
  Country: US (occurrence: US)
  Receive Date: 20161220
  Receipt Date: 20170524
  Transmission Date: 20170830
  Serious: Yes (Other)
  Sender: FDA-Public Use
  Company Number: US-BRISTOL-MYERS SQUIBB COMPANY-BMS-2016-087807

PATIENT
  Sex: Male

DRUGS (2)
  1. NIVOLUMAB [Suspect]
     Active Substance: NIVOLUMAB
     Indication: RENAL CELL CARCINOMA
     Dosage: UNK, Q2WK
     Route: 042
     Dates: start: 20160916
  2. NIVOLUMAB [Suspect]
     Active Substance: NIVOLUMAB
     Indication: PRODUCT USED FOR UNKNOWN INDICATION
     Dosage: UNK
     Route: 042
     Dates: start: 20160916

REACTIONS (19)
  - Dysphonia [Unknown]
  - Arthritis [Unknown]
  - Increased appetite [Unknown]
  - Mucous membrane disorder [Unknown]
  - Arthralgia [Unknown]
  - Insomnia [Unknown]
  - Headache [Recovered/Resolved]
  - Peripheral swelling [Unknown]
  - Constipation [Recovered/Resolved]
  - Blood creatinine increased [Unknown]
  - Pulmonary oedema [Unknown]
  - Central venous catheterisation [Unknown]
  - Neoplasm [Unknown]
  - Lung disorder [Unknown]
  - Pain [Unknown]
  - Pruritus [Unknown]
  - Muscle twitching [Unknown]
  - Occult blood positive [Not Recovered/Not Resolved]
  - Weight decreased [Unknown]
